FAERS Safety Report 7984913-X (Version None)
Quarter: 2011Q4

REPORT INFORMATION
  Report Type: 
  Country: None (occurrence: None)
  Receive Date: 20111216
  Receipt Date: 20111005
  Transmission Date: 20120403
  Serious: No
  Sender: FDA-Public Use
  Company Number: US-ALLERGAN-1113209US

PATIENT
  Age: 62 Year
  Sex: Female

DRUGS (2)
  1. LATISSE [Suspect]
     Indication: GROWTH OF EYELASHES
     Dosage: 1 GTT, QHS
     Route: 061
     Dates: start: 20090101, end: 20111001
  2. OTC EYE DROPS [Concomitant]
     Indication: DRY EYE
     Dosage: UNK

REACTIONS (2)
  - RASH [None]
  - SKIN HYPERPIGMENTATION [None]
